FAERS Safety Report 16906101 (Version 1)
Quarter: 2019Q4

REPORT INFORMATION
  Report Type: Spontaneous
  Country: BE (occurrence: BE)
  Receive Date: 20191010
  Receipt Date: 20191010
  Transmission Date: 20200122
  Serious: Yes (Hospitalization, Other)
  Sender: FDA-Public Use
  Company Number: BE-JNJFOC-20191000744

PATIENT
  Age: 19 Year
  Sex: Female

DRUGS (3)
  1. PARACETAMOL [Suspect]
     Active Substance: ACETAMINOPHEN
     Indication: IMPULSIVE BEHAVIOUR
     Dosage: TAKEN A DOZEN PILLS
     Route: 065
  2. IBUPROFEN. [Suspect]
     Active Substance: IBUPROFEN
     Indication: IMPULSIVE BEHAVIOUR
     Dosage: TAKEN A DOZEN PILLS
     Route: 065
  3. RISPERIDONE UNSPECIFIED [Suspect]
     Active Substance: RISPERIDONE
     Indication: IMPULSIVE BEHAVIOUR
     Dosage: IN TOTAL
     Route: 065

REACTIONS (3)
  - Oculogyric crisis [Recovered/Resolved]
  - Intentional overdose [Recovered/Resolved]
  - Poisoning [Recovered/Resolved]
